FAERS Safety Report 9553862 (Version 1)
Quarter: 2013Q3

REPORT INFORMATION
  Report Type: Spontaneous
  Country: US (occurrence: None)
  Receive Date: 20130924
  Receipt Date: 20130924
  Transmission Date: 20140515
  Serious: Yes (Hospitalization, Other)
  Sender: FDA-Public Use
  Company Number: None

PATIENT
  Age: 20 Year
  Sex: Male
  Weight: 72.58 kg

DRUGS (1)
  1. BENZEDREX INHALER [Suspect]
     Indication: SELF-MEDICATION
     Route: 048
     Dates: start: 20121201, end: 20121217

REACTIONS (8)
  - Hypophagia [None]
  - Insomnia [None]
  - Catatonia [None]
  - Social avoidant behaviour [None]
  - Aggression [None]
  - Psychotic disorder [None]
  - Drug abuse [None]
  - Brain injury [None]
